FAERS Safety Report 5750850-4 (Version None)
Quarter: 2008Q2

REPORT INFORMATION
  Report Type: 
  Country: None (occurrence: None)
  Receive Date: 20080528
  Receipt Date: 20080519
  Transmission Date: 20081010
  Serious: Yes (Disabling)
  Sender: FDA-Public Use
  Company Number: B0521441A

PATIENT
  Age: 55 Year
  Sex: Female

DRUGS (1)
  1. TYVERB [Suspect]
     Route: 048

REACTIONS (4)
  - DRY SKIN [None]
  - GAIT DISTURBANCE [None]
  - IMPAIRED HEALING [None]
  - SKIN FISSURES [None]
